FAERS Safety Report 11490857 (Version 2)
Quarter: 2015Q4

REPORT INFORMATION
  Report Type: Spontaneous
  Country: JP (occurrence: JP)
  Receive Date: 20150910
  Receipt Date: 20151028
  Transmission Date: 20160304
  Serious: Yes (Death, Life-Threatening, Hospitalization)
  Sender: FDA-Public Use
  Company Number: JP-PFIZER INC-2015299222

PATIENT
  Age: 72 Year
  Sex: Female

DRUGS (4)
  1. VFEND [Suspect]
     Active Substance: VORICONAZOLE
     Dosage: 100 MG, 2X/DAY
     Route: 048
     Dates: start: 20130627, end: 20150110
  2. JUZENTAIHOTO [Concomitant]
     Dosage: 2.5 G, 2X/DAY
     Route: 048
     Dates: start: 1999
  3. VFEND [Suspect]
     Active Substance: VORICONAZOLE
     Dosage: UNK
     Route: 041
     Dates: start: 201306
  4. MYSLEE [Concomitant]
     Active Substance: ZOLPIDEM TARTRATE
     Dosage: 0.25 MG, 1X/DAY
     Route: 048
     Dates: start: 2011

REACTIONS (4)
  - Respiratory failure [Fatal]
  - Cardiac failure [Fatal]
  - Malaise [Unknown]
  - Photophobia [Unknown]

NARRATIVE: CASE EVENT DATE: 201306
